FAERS Safety Report 15723732 (Version 4)
Quarter: 2019Q2

REPORT INFORMATION
  Report Type: Report from Study
  Country: US (occurrence: US)
  Receive Date: 20181214
  Receipt Date: 20190404
  Transmission Date: 20190711
  Serious: Yes (Hospitalization)
  Sender: FDA-Public Use
  Company Number: US-ACTELION-A-US2018-167734

PATIENT
  Age: 62 Year
  Sex: Female
  Weight: 52.15 kg

DRUGS (5)
  1. FLOLAN [Concomitant]
     Active Substance: EPOPROSTENOL SODIUM
  2. ENSURE [Concomitant]
     Active Substance: AMINO ACIDS\DEXTROSE\ELECTROLYTES NOS\SOYBEAN OIL\VITAMINS
  3. ADEMPAS [Suspect]
     Active Substance: RIOCIGUAT
     Indication: PRODUCT USED FOR UNKNOWN INDICATION
     Dosage: 1.0 MG, TID
     Route: 065
  4. OPSUMIT [Suspect]
     Active Substance: MACITENTAN
     Indication: PULMONARY HYPERTENSION
     Dosage: 10 MG, QD
     Route: 048
  5. WARFARIN [Concomitant]
     Active Substance: WARFARIN
     Dosage: UNK

REACTIONS (11)
  - Malaise [Unknown]
  - Decreased appetite [Not Recovered/Not Resolved]
  - Dyspnoea [Unknown]
  - Investigation [Unknown]
  - Constipation [Not Recovered/Not Resolved]
  - Weight decreased [Unknown]
  - Hypotension [Not Recovered/Not Resolved]
  - Lung transplant [Unknown]
  - Transplant rejection [Unknown]
  - Drug therapy [Unknown]
  - Dyspepsia [Recovered/Resolved]

NARRATIVE: CASE EVENT DATE: 201802
